FAERS Safety Report 16764824 (Version 3)
Quarter: 2020Q1

REPORT INFORMATION
  Report Type: Report from Study
  Country: None (occurrence: CA)
  Receive Date: 20190903
  Receipt Date: 20200122
  Transmission Date: 20200409
  Serious: Yes (Other)
  Sender: FDA-Public Use
  Company Number: CA-ABBVIE-19K-028-2889638-00

PATIENT
  Sex: Female

DRUGS (2)
  1. HUMIRA [Suspect]
     Active Substance: ADALIMUMAB
     Indication: CROHN^S DISEASE
     Route: 058
  2. METHOTREXATE. [Concomitant]
     Active Substance: METHOTREXATE
     Indication: CROHN^S DISEASE

REACTIONS (6)
  - Rectal stenosis [Unknown]
  - Anorectal discomfort [Recovering/Resolving]
  - Segmental diverticular colitis [Unknown]
  - Adverse drug reaction [Unknown]
  - Stoma site inflammation [Unknown]
  - Anal stenosis [Unknown]

NARRATIVE: CASE EVENT DATE: 2019
